FAERS Safety Report 25259085 (Version 1)
Quarter: 2025Q2

REPORT INFORMATION
  Report Type: Spontaneous
  Country: US (occurrence: US)
  Receive Date: 20250501
  Receipt Date: 20250501
  Transmission Date: 20250717
  Serious: No
  Sender: ROCHE
  Company Number: US-ROCHE-10000273704

PATIENT
  Age: 57 Year
  Sex: Female

DRUGS (1)
  1. ALECTINIB [Suspect]
     Active Substance: ALECTINIB
     Indication: Uterine leiomyosarcoma
     Route: 065

REACTIONS (3)
  - Constipation [Unknown]
  - Photosensitivity reaction [Unknown]
  - Psoriasis [Unknown]
